FAERS Safety Report 6451417-5 (Version None)
Quarter: 2009Q4

REPORT INFORMATION
  Report Type: 
  Country: None (occurrence: None)
  Receive Date: 20091123
  Receipt Date: 20091112
  Transmission Date: 20100525
  Serious: Yes (Hospitalization, Other)
  Sender: FDA-Public Use
  Company Number: US-JNJFOC-20091102007

PATIENT
  Sex: Female
  Weight: 32.93 kg

DRUGS (21)
  1. INFLIXIMAB [Suspect]
     Route: 042
     Dates: start: 20060315, end: 20080103
  2. INFLIXIMAB [Suspect]
     Route: 042
     Dates: start: 20060315, end: 20080103
  3. INFLIXIMAB [Suspect]
     Indication: INFLAMMATORY BOWEL DISEASE
     Route: 042
     Dates: start: 20060315, end: 20080103
  4. MESALAZINE [Concomitant]
     Indication: INFLAMMATORY BOWEL DISEASE
  5. IRON [Concomitant]
  6. ASPIRIN [Concomitant]
  7. AUGMENTIN [Concomitant]
  8. PERCOCET [Concomitant]
  9. ATIVAN [Concomitant]
  10. OMEGA 3 FATTY ACIDS [Concomitant]
  11. MULTI-VITAMINS [Concomitant]
  12. TYLENOL (CAPLET) [Concomitant]
  13. KENALOG [Concomitant]
  14. FLUCONAZOLE [Concomitant]
  15. ACETAMINOPHEN W/ CODEINE [Concomitant]
  16. NYSTATIN [Concomitant]
  17. ZINC SULFATE [Concomitant]
  18. KEFLEX [Concomitant]
  19. KETOCONAZOLE [Concomitant]
  20. HUMIRA [Concomitant]
  21. ANTIBIOTICS [Concomitant]
     Indication: INFLAMMATORY BOWEL DISEASE

REACTIONS (4)
  - ANAPHYLACTIC REACTION [None]
  - DEVICE RELATED INFECTION [None]
  - SEPTIC SHOCK [None]
  - SURGERY [None]
